FAERS Safety Report 20031775 (Version 1)
Quarter: 2021Q4

REPORT INFORMATION
  Report Type: Report from Study
  Country: US (occurrence: US)
  Receive Date: 20211103
  Receipt Date: 20211103
  Transmission Date: 20220303
  Serious: Yes (Other)
  Sender: FDA-Public Use
  Company Number: US-ABBVIE-21K-163-4139554-00

PATIENT
  Sex: Female

DRUGS (3)
  1. RINVOQ [Suspect]
     Active Substance: UPADACITINIB
     Indication: Rheumatoid arthritis
     Route: 048
  2. PFIZER-BIONTECH COVID-19 VACCINE [Concomitant]
     Active Substance: TOZINAMERAN
     Indication: COVID-19 immunisation
     Route: 030
     Dates: start: 20210302, end: 20210302
  3. PFIZER-BIONTECH COVID-19 VACCINE [Concomitant]
     Active Substance: TOZINAMERAN
     Route: 030
     Dates: start: 20210413, end: 20210413

REACTIONS (11)
  - Cholecystitis infective [Unknown]
  - Cholelithiasis [Unknown]
  - Gastrointestinal disorder [Unknown]
  - Reaction to food additive [Not Recovered/Not Resolved]
  - Food intolerance [Recovered/Resolved]
  - Hiatus hernia [Not Recovered/Not Resolved]
  - Sinus disorder [Unknown]
  - Abdominal discomfort [Unknown]
  - Feeling abnormal [Unknown]
  - Food allergy [Not Recovered/Not Resolved]
  - Fatigue [Unknown]
